FAERS Safety Report 20737025 (Version 1)
Quarter: 2022Q2

REPORT INFORMATION
  Report Type: Report from Study
  Country: US (occurrence: US)
  Receive Date: 20220421
  Receipt Date: 20220421
  Transmission Date: 20220721
  Serious: Yes (Other)
  Sender: FDA-Public Use
  Company Number: US-TAKEDA-2022TUS026206

PATIENT
  Sex: Female
  Weight: 70 kg

DRUGS (4)
  1. BRIGATINIB [Suspect]
     Active Substance: BRIGATINIB
     Indication: Non-small cell lung cancer metastatic
     Dosage: 60 MILLIGRAM
     Route: 065
  2. BRIGATINIB [Suspect]
     Active Substance: BRIGATINIB
     Dosage: 90 MILLIGRAM
     Route: 065
  3. BRIGATINIB [Suspect]
     Active Substance: BRIGATINIB
     Dosage: 120 MILLIGRAM
     Route: 065
     Dates: start: 20220322
  4. BRIGATINIB [Suspect]
     Active Substance: BRIGATINIB
     Dosage: 150 MILLIGRAM
     Route: 065
     Dates: start: 20220329

REACTIONS (3)
  - Lung cancer metastatic [Unknown]
  - Faeces discoloured [Recovered/Resolved]
  - Haemoglobin decreased [Unknown]
